FAERS Safety Report 4871583-2 (Version None)
Quarter: 2006Q1

REPORT INFORMATION
  Report Type: 
  Country: None (occurrence: None)
  Receive Date: 20060104
  Receipt Date: 20051223
  Transmission Date: 20060701
  Serious: Yes (Hospitalization)
  Sender: FDA-Public Use
  Company Number: US-JNJFOC-20051203065

PATIENT
  Sex: Male
  Weight: 106.6 kg

DRUGS (2)
  1. REMICADE [Suspect]
     Route: 042
  2. REMICADE [Suspect]
     Route: 042

REACTIONS (6)
  - ABSCESS [None]
  - HAEMORRHAGE [None]
  - LOCAL SWELLING [None]
  - PYREXIA [None]
  - SCROTAL HAEMATOCOELE [None]
  - TESTICULAR SWELLING [None]
